FAERS Safety Report 4345913-4 (Version None)
Quarter: 2004Q2

REPORT INFORMATION
  Report Type: 
  Country: None (occurrence: None)
  Receive Date: 20040421
  Receipt Date: 20040405
  Transmission Date: 20050107
  Serious: Yes (Hospitalization)
  Sender: FDA-Public Use
  Company Number: 194105

PATIENT
  Age: 62 Year
  Sex: Female
  Weight: 62.8232 kg

DRUGS (1)
  1. AVONEX [Suspect]
     Indication: MULTIPLE SCLEROSIS
     Dosage: 30 MCG QW IM
     Route: 030

REACTIONS (2)
  - CEREBROVASCULAR ACCIDENT [None]
  - OSTEOARTHRITIS [None]
